FAERS Safety Report 10204649 (Version 1)
Quarter: 2014Q2

REPORT INFORMATION
  Report Type: Spontaneous
  Country: US (occurrence: None)
  Receive Date: 20140527
  Receipt Date: 20140527
  Transmission Date: 20141212
  Serious: Yes (Hospitalization)
  Sender: FDA-Public Use
  Company Number: None

PATIENT
  Age: 32 Year
  Sex: Female

DRUGS (1)
  1. VANCOMYCIN [Suspect]
     Indication: INFECTION
     Dosage: 2 GRAMS, EVERY 8 HOURS, IV
     Route: 042
     Dates: start: 20120327, end: 20120418

REACTIONS (1)
  - Leukopenia [None]
